FAERS Safety Report 10552865 (Version 1)
Quarter: 2014Q4

REPORT INFORMATION
  Report Type: Spontaneous
  Country: US (occurrence: US)
  Receive Date: 20141029
  Receipt Date: 20141029
  Transmission Date: 20150529
  Serious: Yes (Death, Other)
  Sender: FDA-Public Use
  Company Number: US-CUBIST PHARMACEUTICALS, INC.-2007S1000074

PATIENT
  Age: 59 Year
  Sex: Male

DRUGS (3)
  1. DAPTOMYCIN. [Suspect]
     Active Substance: DAPTOMYCIN
     Dosage: 6 MG/KG, X1
     Route: 042
  2. DAPTOMYCIN. [Suspect]
     Active Substance: DAPTOMYCIN
     Dosage: 4.5 MG/KG, Q36H
     Route: 042
  3. DAPTOMYCIN. [Suspect]
     Active Substance: DAPTOMYCIN

REACTIONS (4)
  - Renal impairment [Recovered/Resolved]
  - Death [Fatal]
  - Drug ineffective [Recovered/Resolved]
  - Creatinine renal clearance decreased [Recovered/Resolved]
